FAERS Safety Report 18691179 (Version 1)
Quarter: 2021Q1

REPORT INFORMATION
  Report Type: Spontaneous
  Country: GB (occurrence: GB)
  Receive Date: 20210101
  Receipt Date: 20210101
  Transmission Date: 20210419
  Serious: Yes (Death, Other)
  Sender: FDA-Public Use
  Company Number: GB-UNIQUE PHARMACEUTICAL LABORATORIES, A DIV. OF JBCPL-2020UNI000005

PATIENT

DRUGS (2)
  1. CARBAMAZEPINE. [Suspect]
     Active Substance: CARBAMAZEPINE
     Indication: EPILEPSY
     Dosage: UNK
     Route: 065
  2. WARFARIN [Concomitant]
     Active Substance: WARFARIN
     Indication: EPILEPSY
     Dosage: UNK
     Route: 065

REACTIONS (2)
  - Withdrawal syndrome [Fatal]
  - Retroperitoneal haemorrhage [Fatal]
